FAERS Safety Report 9042156 (Version 1)
Quarter: 2013Q1

REPORT INFORMATION
  Report Type: Report from Study
  Country: US (occurrence: US)
  Receive Date: 20130129
  Receipt Date: 20130129
  Transmission Date: 20140127
  Serious: No
  Sender: FDA-Public Use
  Company Number: US-ABBOTT-12P-163-0905068-00

PATIENT
  Sex: Female

DRUGS (10)
  1. HUMIRA 40 MG/0.8 ML PEN [Suspect]
     Indication: CROHN^S DISEASE
     Route: 058
     Dates: start: 2010, end: 201112
  2. HUMIRA 40 MG/0.8 ML PEN [Suspect]
     Route: 058
     Dates: start: 20120213
  3. LORATIDINE [Concomitant]
     Indication: SEASONAL ALLERGY
  4. PORTIA [Concomitant]
     Indication: CONTRACEPTION
  5. PROBIOTIC [Concomitant]
     Indication: GASTROINTESTINAL DISORDER
     Dosage: NOT REPORTED
  6. ALOVERA [Concomitant]
     Indication: GASTROINTESTINAL DISORDER
     Dosage: NOT REPORTED
  7. MULTIVITAMIN [Concomitant]
     Indication: VITAMIN SUPPLEMENTATION
  8. VITAMIN B 12 [Concomitant]
     Indication: VITAMIN SUPPLEMENTATION
     Dosage: NOT REPORTED
  9. VITAMIN C [Concomitant]
     Indication: VITAMIN SUPPLEMENTATION
     Dosage: NOT REPORTED
  10. PREDNISONE [Concomitant]
     Indication: CROHN^S DISEASE
     Dosage: NOT REPORTED

REACTIONS (4)
  - Nasal congestion [Recovered/Resolved]
  - Headache [Recovered/Resolved]
  - Pyrexia [Recovered/Resolved]
  - Sinusitis [Recovered/Resolved]
